FAERS Safety Report 5268529-4 (Version None)
Quarter: 2007Q1

REPORT INFORMATION
  Report Type: 
  Country: None (occurrence: None)
  Receive Date: 20070315
  Receipt Date: 20070315
  Transmission Date: 20070707
  Serious: Yes (Other)
  Sender: FDA-Public Use
  Company Number: None

PATIENT
  Age: 35 Year
  Sex: Female
  Weight: 83 kg

DRUGS (1)
  1. LACTATED RINGER'S [Suspect]
     Indication: PREGNANCY
     Dosage: 125L/HR IV DRIP
     Route: 041
     Dates: start: 20070228, end: 20070228

REACTIONS (4)
  - CHEST DISCOMFORT [None]
  - COUGH [None]
  - DRUG EXPOSURE DURING PREGNANCY [None]
  - DYSPNOEA [None]
